FAERS Safety Report 8591906-0 (Version None)
Quarter: 2012Q3

REPORT INFORMATION
  Report Type: 
  Country: None (occurrence: None)
  Receive Date: 20120814
  Receipt Date: 20120810
  Transmission Date: 20120928
  Serious: Yes (Hospitalization)
  Sender: FDA-Public Use
  Company Number: US-VERTEX PHARMACEUTICALS INC.-AE-2012-011951

PATIENT
  Sex: Male

DRUGS (3)
  1. INCIVEK [Suspect]
     Indication: HEPATITIS C
     Route: 048
     Dates: start: 20120511
  2. PEG-INTRON [Concomitant]
     Indication: HEPATITIS C
     Dates: start: 20120511
  3. RIBAVIRIN [Concomitant]
     Indication: HEPATITIS C
     Dates: start: 20120511

REACTIONS (4)
  - VOMITING [None]
  - DIARRHOEA [None]
  - SEPSIS [None]
  - RASH GENERALISED [None]
